FAERS Safety Report 21286390 (Version 1)
Quarter: 2022Q3

REPORT INFORMATION
  Report Type: Spontaneous
  Country: FR (occurrence: FR)
  Receive Date: 20220902
  Receipt Date: 20220902
  Transmission Date: 20221026
  Serious: Yes (Death)
  Sender: FDA-Public Use
  Company Number: None

PATIENT
  Age: 88 Year
  Sex: Female

DRUGS (1)
  1. VALIUM [Suspect]
     Active Substance: DIAZEPAM
     Indication: Agitation
     Dosage: ; IN TOTAL
     Route: 050
     Dates: start: 20220625, end: 20220625

REACTIONS (2)
  - Incorrect dose administered [Fatal]
  - Somnolence [Fatal]

NARRATIVE: CASE EVENT DATE: 20220625
